FAERS Safety Report 5627784-9 (Version None)
Quarter: 2008Q1

REPORT INFORMATION
  Report Type: 
  Country: None (occurrence: None)
  Receive Date: 20080215
  Receipt Date: 20080212
  Transmission Date: 20080703
  Serious: Yes (Other)
  Sender: FDA-Public Use
  Company Number: B0505335A

PATIENT
  Age: 9 Year
  Sex: Female
  Weight: 24 kg

DRUGS (5)
  1. RELENZA [Suspect]
     Indication: INFLUENZA
     Dosage: 10MG TWICE PER DAY
     Route: 055
     Dates: start: 20080123, end: 20080127
  2. ASVERIN [Concomitant]
     Indication: INFLUENZA
     Dosage: 49.8MG PER DAY
     Route: 048
     Dates: start: 20080122, end: 20080126
  3. MUCODYNE [Concomitant]
     Indication: INFLUENZA
     Dosage: 498MG PER DAY
     Route: 048
     Dates: start: 20080122, end: 20080126
  4. ALIMEZINE [Concomitant]
     Indication: INFLUENZA
     Dosage: 3.9MG PER DAY
     Route: 048
     Dates: start: 20080122, end: 20080126
  5. LYZYME [Concomitant]
     Indication: INFLUENZA
     Dosage: 49.8MG PER DAY
     Route: 048
     Dates: start: 20080122, end: 20080126

REACTIONS (4)
  - ABNORMAL BEHAVIOUR [None]
  - HALLUCINATION [None]
  - PYREXIA [None]
  - RESTLESSNESS [None]
